FAERS Safety Report 15776193 (Version 2)
Quarter: 2019Q1

REPORT INFORMATION
  Report Type: Report from Study
  Country: US (occurrence: US)
  Receive Date: 20181231
  Receipt Date: 20190124
  Transmission Date: 20190417
  Serious: No
  Sender: FDA-Public Use
  Company Number: US-BAYER-2018-241340

PATIENT
  Age: 76 Year
  Sex: Male

DRUGS (2)
  1. STIVARGA [Suspect]
     Active Substance: REGORAFENIB
     Indication: PROSTATE CANCER
     Dosage: 120 MG DAILY FOR 21 DAYS ON 7 DAYS OFF
     Route: 048
     Dates: start: 20181213
  2. STIVARGA [Suspect]
     Active Substance: REGORAFENIB
     Indication: PROSTATE CANCER
     Dosage: 80 MG DAILY, 3 WEEKS ON AND 1 WEEK OFF
     Route: 048
     Dates: start: 20190114

REACTIONS (8)
  - Productive cough [Not Recovered/Not Resolved]
  - Fall [None]
  - Cough [Not Recovered/Not Resolved]
  - Diarrhoea [Not Recovered/Not Resolved]
  - Dysphonia [Not Recovered/Not Resolved]
  - Product use in unapproved indication [None]
  - Chest pain [Recovered/Resolved]
  - Off label use [None]

NARRATIVE: CASE EVENT DATE: 20181213
